FAERS Safety Report 9170357 (Version 2)
Quarter: 2013Q4

REPORT INFORMATION
  Report Type: Spontaneous
  Country: FR (occurrence: FR)
  Receive Date: 20130319
  Receipt Date: 20131118
  Transmission Date: 20140711
  Serious: Yes (Life-Threatening, Hospitalization)
  Sender: FDA-Public Use
  Company Number: FR-SANOFI-AVENTIS-2013SA025909

PATIENT
  Age: 46 Year
  Sex: Female
  Weight: 59 kg

DRUGS (4)
  1. LANTUS SOLOSTAR [Suspect]
     Indication: PRODUCT USED FOR UNKNOWN INDICATION
     Route: 058
     Dates: start: 20130218, end: 20130218
  2. SOLOSTAR [Concomitant]
     Indication: DEVICE THERAPY
  3. LEVOTHYROX [Concomitant]
     Dosage: DOSE WAS REDUCED DURING HOSPITALIZATION
     Route: 048
  4. EFFEXOR [Concomitant]
     Dosage: DOSE WAS REDUCED DURING HOSPITALIZATION
     Route: 048

REACTIONS (3)
  - Rhabdomyolysis [Recovered/Resolved]
  - Hypoglycaemic coma [Recovered/Resolved]
  - Intentional overdose [Recovered/Resolved]
